FAERS Safety Report 8269842-9 (Version None)
Quarter: 2012Q2

REPORT INFORMATION
  Report Type: 
  Country: None (occurrence: None)
  Receive Date: 20120410
  Receipt Date: 20120402
  Transmission Date: 20120825
  Serious: Yes (Hospitalization, Other)
  Sender: FDA-Public Use
  Company Number: US-US-EMD SERONO, INC.-7123442

PATIENT
  Sex: Female
  Weight: 84 kg

DRUGS (3)
  1. INSULIN [Concomitant]
     Indication: TYPE 1 DIABETES MELLITUS
     Dates: start: 19950101
  2. REBIF [Suspect]
     Indication: MULTIPLE SCLEROSIS
     Route: 058
     Dates: start: 20111229
  3. UNSPECIFIED MEDICATION FOR HYPERTENSION [Concomitant]
     Indication: HYPERTENSION

REACTIONS (6)
  - MUSCLE RUPTURE [None]
  - VAGINAL HAEMORRHAGE [None]
  - FALL [None]
  - MUSCULAR WEAKNESS [None]
  - KIDNEY INFECTION [None]
  - BLOOD GLUCOSE INCREASED [None]
